FAERS Safety Report 5788787-7 (Version None)
Quarter: 2008Q2

REPORT INFORMATION
  Report Type: 
  Country: None (occurrence: None)
  Receive Date: 20080626
  Receipt Date: 20080620
  Transmission Date: 20081010
  Serious: Yes (Hospitalization)
  Sender: FDA-Public Use
  Company Number: US-WATSON-2008-03563

PATIENT
  Sex: Female
  Weight: 46.259 kg

DRUGS (9)
  1. FIORICET [Suspect]
     Indication: PAIN
     Dosage: 40-60 TABLETS DAILY
     Route: 048
     Dates: end: 20080101
  2. FIORICET [Suspect]
     Indication: MIGRAINE
  3. REBIF [Suspect]
     Indication: MULTIPLE SCLEROSIS
     Dosage: 44 MCG, UNKNOWN
     Route: 058
     Dates: start: 20080304, end: 20080422
  4. WELLBUTRIN [Suspect]
     Indication: DRUG ADMINISTRATION ERROR
     Dosage: UNK
     Dates: start: 20080501
  5. REMERON [Suspect]
     Indication: DRUG DEPENDENCE
     Dosage: UNK
     Route: 065
     Dates: start: 20080502
  6. SEROQUEL [Concomitant]
     Indication: BIPOLAR DISORDER
     Dosage: UNK
  7. CLONAZEPAM [Concomitant]
     Indication: AGORAPHOBIA
     Dosage: UNK
  8. CLONAZEPAM [Concomitant]
     Indication: CONVULSION
  9. VALTREX [Concomitant]
     Indication: ORAL HERPES
     Dosage: UNK

REACTIONS (8)
  - CONFUSIONAL STATE [None]
  - DISORIENTATION [None]
  - DRUG DEPENDENCE [None]
  - DYSKINESIA [None]
  - PAIN [None]
  - PETIT MAL EPILEPSY [None]
  - SELF-INJURIOUS IDEATION [None]
  - TIC [None]
